FAERS Safety Report 12949684 (Version 2)
Quarter: 2016Q4

REPORT INFORMATION
  Report Type: Report from Study
  Country: FR (occurrence: FR)
  Receive Date: 20161117
  Receipt Date: 20161214
  Transmission Date: 20170207
  Serious: Yes (Death, Life-Threatening, Hospitalization, Other)
  Sender: FDA-Public Use
  Company Number: PHHY2016FR157268

PATIENT
  Age: 80 Year
  Sex: Female
  Weight: 68 kg

DRUGS (1)
  1. LETROZOLE. [Suspect]
     Active Substance: LETROZOLE
     Indication: BREAST CANCER STAGE IV
     Dosage: UNK UNK, QD
     Route: 048
     Dates: start: 20150902, end: 20161020

REACTIONS (2)
  - Carotid artery occlusion [Unknown]
  - Cerebral ischaemia [Fatal]

NARRATIVE: CASE EVENT DATE: 20161025
